FAERS Safety Report 4629419-0 (Version None)
Quarter: 2005Q2

REPORT INFORMATION
  Report Type: 
  Country: None (occurrence: None)
  Receive Date: 20050405
  Receipt Date: 20050321
  Transmission Date: 20051028
  Serious: Yes (Disabling)
  Sender: FDA-Public Use
  Company Number: 211065

PATIENT
  Age: 47 Year
  Sex: Female
  Weight: 57 kg

DRUGS (3)
  1. MABTHERA(RITUXIMAB) CONC FOR SOLUTION FOR INFUSION [Suspect]
     Indication: LYMPHOPROLIFERATIVE DISORDER
     Dosage: 600 MG, 1 WEEK, INTRAVENOUS
     Route: 042
     Dates: start: 20041112, end: 20041129
  2. NEORAL [Concomitant]
  3. RANITIDINE [Concomitant]

REACTIONS (5)
  - ANGIONEUROTIC OEDEMA [None]
  - INFLAMMATION [None]
  - OROPHARYNGEAL SWELLING [None]
  - PHARYNGOLARYNGEAL PAIN [None]
  - VASCULITIS [None]
